FAERS Safety Report 9859582 (Version 2)
Quarter: 2014Q1

REPORT INFORMATION
  Report Type: Spontaneous
  Country: FR (occurrence: FR)
  Receive Date: 20140131
  Receipt Date: 20140131
  Transmission Date: 20141002
  Serious: No
  Sender: FDA-Public Use
  Company Number: FR-009507513-01076039

PATIENT
  Age: 30 Year
  Sex: Female

DRUGS (5)
  1. SINGULAIR [Suspect]
     Indication: ASTHMA
     Dosage: 10 MG, QD
     Route: 048
     Dates: start: 20001031, end: 20010401
  2. BECLOMETHASONE DIPROPIONATE [Suspect]
     Indication: ASTHMA
     Route: 055
     Dates: start: 20001031, end: 20010401
  3. THEOPHYLLINE [Suspect]
     Route: 048
     Dates: start: 20001031, end: 20010401
  4. ALBUTEROL SULFATE [Suspect]
     Route: 055
     Dates: start: 20001031, end: 20010401
  5. IPRATROPIUM BROMIDE (WARRICK) [Suspect]
     Route: 048

REACTIONS (1)
  - Maternal exposure during pregnancy [Recovered/Resolved]
